FAERS Safety Report 5132292-8 (Version None)
Quarter: 2006Q4

REPORT INFORMATION
  Report Type: 
  Country: None (occurrence: None)
  Receive Date: 20061019
  Receipt Date: 20061019
  Transmission Date: 20070319
  Serious: Yes (Hospitalization)
  Sender: FDA-Public Use
  Company Number: None

PATIENT
  Age: 88 Year
  Sex: Male
  Weight: 76.7 kg

DRUGS (17)
  1. METRONIDAZOLE [Suspect]
  2. TRAZODONE HCL [Concomitant]
  3. SYNTHROID [Concomitant]
  4. CYANOCOBALAMIN [Concomitant]
  5. SIMVASTATIN [Concomitant]
  6. ISOSORBIDE MONONITRATE [Concomitant]
  7. CITALOPRAM HYDROBROMIDE [Concomitant]
  8. ASPIRIN [Concomitant]
  9. TOLTERODINE TARTRATE [Concomitant]
  10. OMEPRAZOLE [Concomitant]
  11. PROCHLORPERAZINE [Concomitant]
  12. LOPERAMIDE [Concomitant]
  13. INSULIN REG HUMAN / NOVOLIN R [Concomitant]
  14. FUROSEMIDE [Concomitant]
  15. NITROGLYCERIN [Concomitant]
  16. METOCLOPRAMIDE [Concomitant]
  17. GLIPIZIDE [Concomitant]

REACTIONS (2)
  - NAUSEA [None]
  - VOMITING [None]
